FAERS Safety Report 6791287-9 (Version None)
Quarter: 2010Q2

REPORT INFORMATION
  Report Type: 
  Country: None (occurrence: None)
  Receive Date: 20100624
  Receipt Date: 20100617
  Transmission Date: 20101027
  Serious: Yes (Other)
  Sender: FDA-Public Use
  Company Number: CHPA2010IT10254

PATIENT
  Sex: Female

DRUGS (2)
  1. IBUPROFEN (NCH) [Suspect]
     Dosage: UNK,UNK
  2. PARACETAMOL (NCH) [Suspect]

REACTIONS (1)
  - HYPOTHERMIA [None]
